FAERS Safety Report 19657333 (Version 1)
Quarter: 2021Q3

REPORT INFORMATION
  Report Type: Spontaneous
  Country: ES (occurrence: ES)
  Receive Date: 20210804
  Receipt Date: 20210804
  Transmission Date: 20211014
  Serious: Yes (Hospitalization)
  Sender: FDA-Public Use
  Company Number: ES-MYLANLABS-2021M1047548

PATIENT
  Age: 87 Year
  Sex: Female

DRUGS (8)
  1. OMEPRAZOL                          /00661201/ [Concomitant]
     Active Substance: OMEPRAZOLE
     Dosage: UNK
  2. CLOTRIMAZOL [Concomitant]
     Active Substance: CLOTRIMAZOLE
     Dosage: UNK
  3. GABAPENTIN. [Suspect]
     Active Substance: GABAPENTIN
     Indication: PAIN
     Dosage: 400 MILLIGRAM, BID
     Route: 048
     Dates: start: 20210109
  4. RISPERIDONA TARBIS [Suspect]
     Active Substance: RISPERIDONE
     Indication: AGITATION
     Dosage: 0.5 MILLIGRAM
     Route: 048
  5. DELTIUS [Concomitant]
     Active Substance: CHOLECALCIFEROL
     Dosage: 25.000 UI/2,5 ML
  6. MORFINA                            /00036301/ [Suspect]
     Active Substance: MORPHINE
     Indication: PAIN
     Dosage: 100 MILLIGRAM, QD
     Dates: start: 20191021
  7. METAMIZOL                          /06276701/ [Concomitant]
     Active Substance: METAMIZOLE
     Dosage: UNK
  8. TRAZODONA                          /00447701/ [Suspect]
     Active Substance: TRAZODONE HYDROCHLORIDE
     Indication: INSOMNIA
     Dosage: 100 MILLIGRAM, QD
     Route: 048
     Dates: start: 20210126

REACTIONS (1)
  - Hypoxic-ischaemic encephalopathy [Recovering/Resolving]

NARRATIVE: CASE EVENT DATE: 20210127
